FAERS Safety Report 7740236-5 (Version None)
Quarter: 2011Q3

REPORT INFORMATION
  Report Type: 
  Country: None (occurrence: None)
  Receive Date: 20110909
  Receipt Date: 20110901
  Transmission Date: 20111222
  Serious: Yes (Hospitalization, Other)
  Sender: FDA-Public Use
  Company Number: CL-ROCHE-752918

PATIENT
  Sex: Female
  Weight: 47 kg

DRUGS (3)
  1. PEGINTERFERON ALFA-2A [Suspect]
     Route: 058
     Dates: start: 20110808
  2. RIBAVIRIN [Suspect]
     Indication: HEPATITIS C
     Dosage: DOSE: 600 MG IN THE MORNING AND 400 MG IN THE NIGHT.
     Route: 048
     Dates: start: 20101102
  3. PEGINTERFERON ALFA-2A [Suspect]
     Indication: HEPATITIS C
     Route: 058
     Dates: start: 20101102

REACTIONS (8)
  - VIITH NERVE PARALYSIS [None]
  - DIARRHOEA [None]
  - WHITE BLOOD CELL COUNT DECREASED [None]
  - DEPRESSION [None]
  - EAR INFECTION [None]
  - DEHYDRATION [None]
  - HYPERSENSITIVITY [None]
  - CATARACT [None]
